FAERS Safety Report 12890884 (Version 2)
Quarter: 2016Q4

REPORT INFORMATION
  Report Type: Spontaneous
  Country: MY (occurrence: MY)
  Receive Date: 20161027
  Receipt Date: 20161103
  Transmission Date: 20170207
  Serious: Yes (Death, Hospitalization)
  Sender: FDA-Public Use
  Company Number: MY-ALLERGAN-1673922US

PATIENT
  Age: 22 Year
  Sex: Male

DRUGS (1)
  1. MESALAZINE UNK [Suspect]
     Active Substance: MESALAMINE
     Indication: CROHN^S DISEASE
     Dosage: 2 UNK, UNK
     Dates: start: 2015

REACTIONS (5)
  - Disseminated tuberculosis [Unknown]
  - Coagulopathy [Unknown]
  - Septic shock [Unknown]
  - Pulmonary haemorrhage [Unknown]
  - Acute respiratory distress syndrome [Fatal]
